FAERS Safety Report 8170108-6 (Version None)
Quarter: 2012Q1

REPORT INFORMATION
  Report Type: 
  Country: None (occurrence: None)
  Receive Date: 20120228
  Receipt Date: 20120222
  Transmission Date: 20120608
  Serious: Yes (Disabling)
  Sender: FDA-Public Use
  Company Number: CA-B.I. PHARMACEUTICALS,INC./RIDGEFIELD-2012-CN-00417CN

PATIENT
  Age: 75 Year
  Sex: Female
  Weight: 60 kg

DRUGS (5)
  1. PRADAXA [Suspect]
     Dosage: 300 MG
     Route: 048
  2. NORVASC [Concomitant]
     Route: 048
  3. PRADAXA [Suspect]
     Dosage: 220 MG
     Route: 048
  4. MICARDIS [Concomitant]
     Route: 048
  5. MULTAQ [Concomitant]
     Route: 065

REACTIONS (1)
  - WHEEZING [None]
